FAERS Safety Report 25221254 (Version 1)
Quarter: 2025Q2

REPORT INFORMATION
  Report Type: Spontaneous
  Country: DE (occurrence: DE)
  Receive Date: 20250421
  Receipt Date: 20250421
  Transmission Date: 20250716
  Serious: Yes (Other)
  Sender: ASCEND THERAPEUTICS US, LLC
  Company Number: DE-Ascend Therapeutics US, LLC-2175280

PATIENT
  Sex: Female

DRUGS (3)
  1. ESTROGEL [Suspect]
     Active Substance: ESTRADIOL
     Indication: Product used for unknown indication
  2. ESTRADIOL [Suspect]
     Active Substance: ESTRADIOL
  3. PROGESTERONE [Suspect]
     Active Substance: PROGESTERONE

REACTIONS (5)
  - Loss of consciousness [Unknown]
  - Product prescribing error [Unknown]
  - Prescribed underdose [Unknown]
  - Migraine [Unknown]
  - Blood pressure decreased [Unknown]
